FAERS Safety Report 9988928 (Version 2)
Quarter: 2014Q1

REPORT INFORMATION
  Report Type: Report from Study
  Country: US (occurrence: US)
  Receive Date: 20140310
  Receipt Date: 20140310
  Transmission Date: 20141002
  Serious: No
  Sender: FDA-Public Use
  Company Number: US-ABBVIE-13P-163-1107595-00

PATIENT
  Age: 52 Year
  Sex: Female

DRUGS (9)
  1. HUMIRA [Suspect]
     Indication: PSORIATIC ARTHROPATHY
     Route: 058
     Dates: start: 20130531
  2. HUMIRA [Suspect]
     Dates: start: 20130811
  3. METHOTREXATE [Concomitant]
     Indication: PSORIATIC ARTHROPATHY
     Dates: end: 20130703
  4. METHOTREXATE [Concomitant]
     Dosage: 2,5 MG (3 PILLS/WEEK)
     Dates: start: 20130805
  5. FOLIC ACID [Concomitant]
     Indication: VITAMIN SUPPLEMENTATION
  6. CELEBREX [Concomitant]
     Indication: PAIN
  7. MULTIVITAMIN [Concomitant]
     Indication: VITAMIN SUPPLEMENTATION
  8. VITAMIN D [Concomitant]
     Indication: VITAMIN SUPPLEMENTATION
  9. FISH OIL [Concomitant]
     Indication: NUTRITIONAL SUPPLEMENTATION
     Dosage: 1200MG/360MG

REACTIONS (6)
  - Sinus headache [Recovering/Resolving]
  - Headache [Recovering/Resolving]
  - Hypersensitivity [Recovering/Resolving]
  - Burning sensation [Recovered/Resolved]
  - Sinusitis [Not Recovered/Not Resolved]
  - Injection site erythema [Unknown]
